FAERS Safety Report 8711491 (Version 3)
Quarter: 2015Q1

REPORT INFORMATION
  Report Type: Report from Study
  Country: US (occurrence: US)
  Receive Date: 20120807
  Receipt Date: 20150220
  Transmission Date: 20150721
  Serious: Yes (Hospitalization)
  Sender: FDA-Public Use
  Company Number: US-ROCHE-1098257

PATIENT
  Sex: Male

DRUGS (29)
  1. FLONASE (UNITED STATES) [Concomitant]
     Dosage: AT BEDTIME
     Route: 045
  2. SEROQUEL [Concomitant]
     Active Substance: QUETIAPINE FUMARATE
     Dosage: AT BEDTIME
     Route: 065
  3. NEXIUM [Concomitant]
     Active Substance: ESOMEPRAZOLE MAGNESIUM
  4. PULMICORT TURBUHALER [Concomitant]
     Active Substance: BUDESONIDE
     Route: 065
  5. VISTARIL [Concomitant]
     Active Substance: HYDROXYZINE PAMOATE
     Dosage: AT BEDTIME
     Route: 065
  6. AMBIEN [Concomitant]
     Active Substance: ZOLPIDEM TARTRATE
  7. ALLEGRA [Concomitant]
     Active Substance: FEXOFENADINE HYDROCHLORIDE
     Route: 065
  8. ZOCOR [Concomitant]
     Active Substance: SIMVASTATIN
     Route: 065
  9. SEROQUEL [Concomitant]
     Active Substance: QUETIAPINE FUMARATE
     Route: 065
  10. VISTARIL [Concomitant]
     Active Substance: HYDROXYZINE PAMOATE
     Dosage: AS NEEDED
     Route: 065
  11. LISINOPRIL. [Concomitant]
     Active Substance: LISINOPRIL
  12. XOLAIR [Suspect]
     Active Substance: OMALIZUMAB
     Indication: ASTHMA
     Route: 065
     Dates: start: 2005
  13. TRAZODONE [Concomitant]
     Active Substance: TRAZODONE HYDROCHLORIDE
     Dosage: AT BEDTIME
     Route: 065
  14. ASPIRIN. [Concomitant]
     Active Substance: ASPIRIN
     Route: 065
  15. XOPENEX [Concomitant]
     Active Substance: LEVALBUTEROL HYDROCHLORIDE
     Route: 065
  16. PROTONIX (UNITED STATES) [Concomitant]
     Route: 065
  17. ZOCOR [Concomitant]
     Active Substance: SIMVASTATIN
     Route: 065
  18. DESYREL [Concomitant]
     Active Substance: TRAZODONE HYDROCHLORIDE
     Dosage: AT BEDTIME
     Route: 065
  19. SPIRIVA [Concomitant]
     Active Substance: TIOTROPIUM BROMIDE MONOHYDRATE
     Route: 065
  20. CARDIZEM CD [Concomitant]
     Active Substance: DILTIAZEM HYDROCHLORIDE
     Route: 065
  21. CLONIDINE. [Concomitant]
     Active Substance: CLONIDINE
     Route: 065
  22. PROZAC [Concomitant]
     Active Substance: FLUOXETINE HYDROCHLORIDE
     Route: 065
  23. ALBUTEROL. [Concomitant]
     Active Substance: ALBUTEROL
  24. PREDNISONE. [Concomitant]
     Active Substance: PREDNISONE
  25. ADVAIR HFA [Concomitant]
     Active Substance: FLUTICASONE PROPIONATE\SALMETEROL XINAFOATE
     Dosage: 500/50
     Route: 065
  26. ASTELIN (UNITED STATES) [Concomitant]
     Route: 045
  27. FLOMAX (UNITED STATES) [Concomitant]
     Route: 065
  28. ZETIA [Concomitant]
     Active Substance: EZETIMIBE
     Route: 065
  29. LASIX [Concomitant]
     Active Substance: FUROSEMIDE
     Route: 065

REACTIONS (14)
  - Pneumonia [Unknown]
  - Middle insomnia [Unknown]
  - Dyspnoea [Unknown]
  - Nasal oedema [Unknown]
  - Cerumen impaction [Unknown]
  - Upper-airway cough syndrome [Unknown]
  - Rib fracture [Unknown]
  - Oedema peripheral [Unknown]
  - Tympanic membrane disorder [Unknown]
  - Asthma [Unknown]
  - Fall [Unknown]
  - Intestinal ischaemia [Unknown]
  - Aphonia [Unknown]
  - Weight decreased [Unknown]
